FAERS Safety Report 19889576 (Version 1)
Quarter: 2021Q3

REPORT INFORMATION
  Report Type: Spontaneous
  Country: GB (occurrence: GB)
  Receive Date: 20210927
  Receipt Date: 20210927
  Transmission Date: 20211014
  Serious: Yes (Life-Threatening, Hospitalization)
  Sender: FDA-Public Use
  Company Number: GB-TEVA-2021-GB-1957148

PATIENT
  Age: 95 Year
  Sex: Female
  Weight: 71.2 kg

DRUGS (4)
  1. ATORVASTATIN [Concomitant]
     Active Substance: ATORVASTATIN
     Indication: ILL-DEFINED DISORDER
  2. CAPTOPRIL. [Concomitant]
     Active Substance: CAPTOPRIL
     Indication: ILL-DEFINED DISORDER
  3. FELODIPINE. [Concomitant]
     Active Substance: FELODIPINE
     Indication: ILL-DEFINED DISORDER
  4. WARFARIN [Suspect]
     Active Substance: WARFARIN
     Indication: ATRIAL FIBRILLATION
     Dosage: 9 MG ON MONDAYS ? 5 MG REST OF WEEK
     Route: 048

REACTIONS (1)
  - Treatment failure [Recovering/Resolving]
